FAERS Safety Report 8551770-2 (Version None)
Quarter: 2012Q3

REPORT INFORMATION
  Report Type: 
  Country: None (occurrence: None)
  Receive Date: 20120730
  Receipt Date: 20120726
  Transmission Date: 20120928
  Serious: Yes (Death, Hospitalization)
  Sender: FDA-Public Use
  Company Number: US-B.I. PHARMACEUTICALS,INC./RIDGEFIELD-2012-BP-15921BP

PATIENT
  Age: 85 Year
  Sex: Female

DRUGS (1)
  1. PRADAXA [Suspect]
     Indication: ATRIAL FIBRILLATION
     Dosage: 300 MG
     Route: 048

REACTIONS (9)
  - FLUID OVERLOAD [None]
  - PUNCTURE SITE HAEMORRHAGE [None]
  - HAEMATOMA [None]
  - RENAL FAILURE [None]
  - INFLUENZA LIKE ILLNESS [None]
  - DEHYDRATION [None]
  - HAEMORRHAGE [None]
  - CARDIOPULMONARY FAILURE [None]
  - FALL [None]
